FAERS Safety Report 6076218-1 (Version None)
Quarter: 2009Q1

REPORT INFORMATION
  Report Type: 
  Country: None (occurrence: None)
  Receive Date: 20090212
  Receipt Date: 20081023
  Transmission Date: 20090719
  Serious: Yes (Other)
  Sender: FDA-Public Use
  Company Number: AU-GENENTECH-276833

PATIENT
  Sex: Male

DRUGS (2)
  1. LUCENTIS [Suspect]
     Indication: MACULAR DEGENERATION
     Dosage: UNK
     Dates: start: 20070801
  2. AVASTIN [Suspect]
     Indication: MACULAR DEGENERATION

REACTIONS (1)
  - VISUAL ACUITY REDUCED [None]
